FAERS Safety Report 21165327 (Version 2)
Quarter: 2022Q3

REPORT INFORMATION
  Report Type: Spontaneous
  Country: GB (occurrence: GB)
  Receive Date: 20220803
  Receipt Date: 20220930
  Transmission Date: 20221026
  Serious: Yes (Other)
  Sender: FDA-Public Use
  Company Number: GB-BRISTOL-MYERS SQUIBB COMPANY-2022-037716

PATIENT
  Age: 39 Year
  Sex: Female

DRUGS (3)
  1. KENALOG [Suspect]
     Active Substance: TRIAMCINOLONE ACETONIDE
     Indication: Periarthritis
     Dosage: DOSE : 80MG;     FREQ : UNAVAILABLE (1 DOSE ONLY)
     Route: 065
     Dates: start: 20220421
  2. CLENIL [NITROPRUSSIDE SODIUM] [Concomitant]
     Indication: Asthma
     Dates: start: 20211203
  3. ALBUTEROL [Concomitant]
     Active Substance: ALBUTEROL
     Indication: Asthma
     Dosage: PRN
     Dates: start: 20211203

REACTIONS (12)
  - Intentional product use issue [Unknown]
  - Fatigue [Not Recovered/Not Resolved]
  - Mood swings [Recovering/Resolving]
  - Nausea [Unknown]
  - Decreased appetite [Recovering/Resolving]
  - Headache [Unknown]
  - Confusional state [Unknown]
  - Menstrual disorder [Unknown]
  - Agitation [Unknown]
  - Anxiety [Unknown]
  - Depression [Recovering/Resolving]
  - Weight decreased [Unknown]

NARRATIVE: CASE EVENT DATE: 20220421
